FAERS Safety Report 13992630 (Version 1)
Quarter: 2017Q3

REPORT INFORMATION
  Report Type: Spontaneous
  Country: NZ (occurrence: NZ)
  Receive Date: 20170920
  Receipt Date: 20170920
  Transmission Date: 20171128
  Serious: No
  Sender: FDA-Public Use
  Company Number: NZ-RECKITT BENCKISER HEALTHCARE INT LIMITED-RB-91178-2017

PATIENT
  Sex: Male

DRUGS (1)
  1. MUCINEX [Suspect]
     Active Substance: GUAIFENESIN
     Indication: PRODUCT USED FOR UNKNOWN INDICATION
     Dosage: UNK, ( TRIED IT THREE TIMES)
     Route: 065

REACTIONS (2)
  - Choking [Unknown]
  - Product size issue [Unknown]
